FAERS Safety Report 5018941-3 (Version None)
Quarter: 2006Q2

REPORT INFORMATION
  Report Type: 
  Country: None (occurrence: None)
  Receive Date: 20060606
  Receipt Date: 20060531
  Transmission Date: 20061013
  Serious: Yes (Other)
  Sender: FDA-Public Use
  Company Number: BE-AVENTIS-200615777GDDC

PATIENT
  Sex: Female

DRUGS (4)
  1. KETEK [Suspect]
     Dosage: DOSE: UNK
  2. ACETAMINOPHEN [Concomitant]
     Indication: PAIN
     Dosage: DOSE: UNK
  3. EFFEXOR [Concomitant]
     Indication: DEPRESSION
     Dosage: DOSE: UNK
  4. PIROXICAM [Concomitant]
     Indication: OSTEOARTHRITIS
     Dosage: DOSE: UNK

REACTIONS (1)
  - HEPATITIS [None]
